FAERS Safety Report 8459668-5 (Version None)
Quarter: 2012Q2

REPORT INFORMATION
  Report Type: 
  Country: None (occurrence: None)
  Receive Date: 20120622
  Receipt Date: 20120615
  Transmission Date: 20120825
  Serious: Yes (Hospitalization)
  Sender: FDA-Public Use
  Company Number: BE-JNJFOC-20120601454

PATIENT
  Sex: Male
  Weight: 84 kg

DRUGS (8)
  1. PRAVASTATIN [Concomitant]
  2. REMICADE [Suspect]
     Indication: COLITIS ULCERATIVE
     Route: 042
     Dates: start: 20080716
  3. BISOPROLOL [Concomitant]
  4. CORDARONE [Concomitant]
  5. ZANTAC [Concomitant]
  6. ALLOPURINOL [Concomitant]
  7. BUMETANIDE [Concomitant]
  8. ALLOPURINOL [Concomitant]

REACTIONS (1)
  - ATRIAL FIBRILLATION [None]
